FAERS Safety Report 12811464 (Version 1)
Quarter: 2016Q4

REPORT INFORMATION
  Report Type: Spontaneous
  Country: US (occurrence: US)
  Receive Date: 20161005
  Receipt Date: 20161005
  Transmission Date: 20170207
  Serious: No
  Sender: FDA-Public Use
  Company Number: US-AMGEN-USASP2016095228

PATIENT
  Age: 77 Year
  Sex: Female

DRUGS (1)
  1. PROLIA [Suspect]
     Active Substance: DENOSUMAB
     Indication: OSTEOPOROSIS POSTMENOPAUSAL
     Dosage: UNK
     Route: 065
     Dates: start: 20160105, end: 20160105

REACTIONS (24)
  - Feeling abnormal [Unknown]
  - Extrasystoles [Unknown]
  - Throat tightness [Unknown]
  - Heart rate increased [Unknown]
  - Grip strength decreased [Not Recovered/Not Resolved]
  - Oropharyngeal pain [Not Recovered/Not Resolved]
  - Myalgia [Unknown]
  - Pain in extremity [Not Recovered/Not Resolved]
  - Muscle spasms [Unknown]
  - Skin discolouration [Unknown]
  - Toothache [Unknown]
  - Mastoid disorder [Unknown]
  - Nausea [Recovered/Resolved]
  - Headache [Recovered/Resolved]
  - Oral mucosal blistering [Unknown]
  - Jaw disorder [Not Recovered/Not Resolved]
  - Pain in jaw [Unknown]
  - Abdominal pain [Not Recovered/Not Resolved]
  - Blister [Not Recovered/Not Resolved]
  - Bladder disorder [Unknown]
  - Cough [Unknown]
  - Urinary tract infection [Unknown]
  - Arthralgia [Unknown]
  - Muscle twitching [Unknown]

NARRATIVE: CASE EVENT DATE: 20160108
